FAERS Safety Report 11785099 (Version 1)
Quarter: 2015Q4

REPORT INFORMATION
  Report Type: Spontaneous
  Country: US (occurrence: None)
  Receive Date: 20151125
  Receipt Date: 20151125
  Transmission Date: 20160305
  Serious: Yes (Death)
  Sender: FDA-Public Use
  Company Number: None

PATIENT
  Age: 64 Year
  Sex: Male
  Weight: 116.58 kg

DRUGS (18)
  1. ATORVASTATIN [Concomitant]
     Active Substance: ATORVASTATIN
  2. FLUVOXAMINE [Concomitant]
     Active Substance: FLUVOXAMINE
  3. LEVOTHYROXINE. [Concomitant]
     Active Substance: LEVOTHYROXINE
  4. METFORMIN [Concomitant]
     Active Substance: METFORMIN HYDROCHLORIDE
  5. DIOVAN [Concomitant]
     Active Substance: VALSARTAN
  6. AZITHROMYCIN 250MG DOSE PACK PFIFZER [Suspect]
     Active Substance: AZITHROMYCIN DIHYDRATE
     Indication: COUGH
     Dosage: 2 PILLS DAY 1, 1 PILL DAYS 2-5
     Route: 048
     Dates: start: 20150918, end: 20150920
  7. AZITHROMYCIN 250MG DOSE PACK PFIFZER [Suspect]
     Active Substance: AZITHROMYCIN DIHYDRATE
     Indication: PYREXIA
     Dosage: 2 PILLS DAY 1, 1 PILL DAYS 2-5
     Route: 048
     Dates: start: 20150918, end: 20150920
  8. ASPIRIN. [Concomitant]
     Active Substance: ASPIRIN
  9. CANAGLIFLOZIN [Concomitant]
     Active Substance: CANAGLIFLOZIN
  10. CLONAZEPAM. [Concomitant]
     Active Substance: CLONAZEPAM
  11. GABAPETIN [Concomitant]
     Active Substance: GABAPENTIN
  12. TOPIRAMATE. [Concomitant]
     Active Substance: TOPIRAMATE
  13. HYDROCODONE [Concomitant]
     Active Substance: HYDROCODONE
  14. GLIPIZIDE. [Concomitant]
     Active Substance: GLIPIZIDE
  15. AZITHROMYCINE [Concomitant]
     Active Substance: AZITHROMYCIN DIHYDRATE
  16. VITAMIN D3 [Concomitant]
     Active Substance: CHOLECALCIFEROL
  17. EYE GLASSES FRAME (METAL) [Concomitant]
     Active Substance: DEVICE
  18. MIRTAZAPINE. [Concomitant]
     Active Substance: MIRTAZAPINE

REACTIONS (17)
  - Chest pain [None]
  - Movement disorder [None]
  - Vomiting [None]
  - Pneumonia [None]
  - Fatigue [None]
  - Pulmonary oedema [None]
  - Ventricular hypertrophy [None]
  - Diarrhoea [None]
  - Hepatic fibrosis [None]
  - Hepatic steatosis [None]
  - Nausea [None]
  - Thirst [None]
  - Sudden death [None]
  - Hyperhidrosis [None]
  - Circulatory collapse [None]
  - Cardiomegaly [None]
  - Cardiac arrest [None]

NARRATIVE: CASE EVENT DATE: 20150920
